FAERS Safety Report 6872146-X (Version None)
Quarter: 2010Q3

REPORT INFORMATION
  Report Type: 
  Country: None (occurrence: None)
  Receive Date: 20100723
  Receipt Date: 20100715
  Transmission Date: 20110219
  Serious: Yes (Hospitalization)
  Sender: FDA-Public Use
  Company Number: CHPA2010JP08591

PATIENT
  Sex: Female
  Weight: 58 kg

DRUGS (6)
  1. TAVEGYL (NCH) [Suspect]
     Dosage: 1 MG, QD
     Route: 048
     Dates: start: 20080616, end: 20090726
  2. LORAZEPAM [Suspect]
     Indication: PANIC DISORDER
     Dosage: 0.5 MG, BID
     Route: 048
     Dates: start: 20090318, end: 20090726
  3. PAXIL [Suspect]
     Indication: PANIC DISORDER
     Dosage: 10 MG, QD
     Route: 048
     Dates: start: 20090318, end: 20090726
  4. TALION [Suspect]
     Indication: URTICARIA CHRONIC
     Dosage: 10 MG, BID
     Route: 048
     Dates: start: 20080825, end: 20090726
  5. MEILAX [Concomitant]
     Indication: PANIC DISORDER
     Dosage: UNK, UNK
     Route: 065
     Dates: start: 20090317
  6. LORAZEPAM [Concomitant]
     Indication: PANIC DISORDER
     Dosage: UNK, UNK
     Route: 048
     Dates: start: 20090317, end: 20090726

REACTIONS (4)
  - DRUG EXPOSURE DURING PREGNANCY [None]
  - HYPERVENTILATION [None]
  - PALPITATIONS [None]
  - PANIC DISORDER [None]
